FAERS Safety Report 17392157 (Version 8)
Quarter: 2020Q4

REPORT INFORMATION
  Report Type: Report from Study
  Country: US (occurrence: US)
  Receive Date: 20200207
  Receipt Date: 20201028
  Transmission Date: 20210113
  Serious: No
  Sender: FDA-Public Use
  Company Number: NVSC2020US032330

PATIENT
  Age: 88 Year
  Sex: Female

DRUGS (3)
  1. PIQRAY [Suspect]
     Active Substance: ALPELISIB
     Dosage: 250 MG, QD
     Route: 048
  2. PIQRAY [Suspect]
     Active Substance: ALPELISIB
     Indication: BREAST CANCER FEMALE
     Dosage: 300 MG
     Route: 048
     Dates: start: 20191001, end: 20191012
  3. PIQRAY [Suspect]
     Active Substance: ALPELISIB
     Dosage: 300 MG, QD
     Route: 048

REACTIONS (21)
  - Rash macular [Unknown]
  - Insomnia [Unknown]
  - Constipation [Unknown]
  - Stomatitis [Unknown]
  - Eating disorder [Unknown]
  - Nausea [Unknown]
  - Taste disorder [Unknown]
  - Rash [Unknown]
  - Dyspepsia [Unknown]
  - Dry mouth [Unknown]
  - Decreased appetite [Unknown]
  - Tumour marker increased [Unknown]
  - Somnolence [Unknown]
  - Diarrhoea [Unknown]
  - Product dose omission issue [Unknown]
  - Fatigue [Unknown]
  - Pruritus [Recovered/Resolved with Sequelae]
  - Blood glucose increased [Unknown]
  - Dysgeusia [Not Recovered/Not Resolved]
  - Weight decreased [Unknown]
  - Ageusia [Unknown]

NARRATIVE: CASE EVENT DATE: 201911
